FAERS Safety Report 7421344-5 (Version None)
Quarter: 2011Q2

REPORT INFORMATION
  Report Type: 
  Country: None (occurrence: None)
  Receive Date: 20110408
  Receipt Date: 20110328
  Transmission Date: 20111010
  Serious: Yes (Other)
  Sender: FDA-Public Use
  Company Number: TRP_07623_2011

PATIENT
  Age: 53 Year
  Sex: Male

DRUGS (7)
  1. PEGINTERFERON ALFA-2B [Suspect]
     Indication: HEPATITIS C
     Dosage: (150 ?G 1X/WEEK)
  2. LEVETIRACETAM [Concomitant]
  3. ANTIHYPERTENSIVES [Concomitant]
  4. PHENYTOIN [Concomitant]
  5. DRUG USED IN DIABETES [Concomitant]
  6. RIBAVIRIN [Suspect]
     Indication: HEPATITIS C
     Dosage: (1200 MG, DAILY)
  7. ANTIDEPRESSANTS [Concomitant]

REACTIONS (4)
  - SUICIDAL IDEATION [None]
  - DEPRESSION [None]
  - AGITATION [None]
  - CONVULSION [None]
